FAERS Safety Report 16320266 (Version 2)
Quarter: 2019Q2

REPORT INFORMATION
  Report Type: Spontaneous
  Country: US (occurrence: US)
  Receive Date: 20190516
  Receipt Date: 20190611
  Transmission Date: 20190711
  Serious: No
  Sender: FDA-Public Use
  Company Number: US-PFIZER INC-2019205649

PATIENT
  Sex: Female

DRUGS (2)
  1. EUCRISA [Suspect]
     Active Substance: CRISABOROLE
     Indication: VULVOVAGINAL DRYNESS
     Dosage: UNK
  2. EUCRISA [Suspect]
     Active Substance: CRISABOROLE
     Indication: VULVOVAGINAL DISCOMFORT

REACTIONS (3)
  - Off label use [Unknown]
  - Application site discomfort [Unknown]
  - Drug effective for unapproved indication [Unknown]
